FAERS Safety Report 7399964-6 (Version None)
Quarter: 2011Q2

REPORT INFORMATION
  Report Type: 
  Country: None (occurrence: None)
  Receive Date: 20110407
  Receipt Date: 20110324
  Transmission Date: 20111010
  Serious: Yes (Other)
  Sender: FDA-Public Use
  Company Number: US-JNJFOC-20110401224

PATIENT
  Sex: Female
  Weight: 46.27 kg

DRUGS (3)
  1. DURAGESIC [Suspect]
     Indication: PAIN
     Route: 062
  2. DURAGESIC [Suspect]
     Route: 062
  3. FENTANYL-100 [Suspect]
     Indication: PAIN
     Route: 062

REACTIONS (3)
  - SKIN REACTION [None]
  - WRONG TECHNIQUE IN DRUG USAGE PROCESS [None]
  - SKIN HAEMORRHAGE [None]
